FAERS Safety Report 20552742 (Version 1)
Quarter: 2022Q1

REPORT INFORMATION
  Report Type: Spontaneous
  Country: PT (occurrence: PT)
  Receive Date: 20220304
  Receipt Date: 20220304
  Transmission Date: 20220423
  Serious: Yes (Hospitalization)
  Sender: FDA-Public Use
  Company Number: None

PATIENT
  Age: 48 Year
  Sex: Female
  Weight: 73 kg

DRUGS (1)
  1. ULTRAVIST [Suspect]
     Active Substance: IOPROMIDE
     Indication: Diagnostic procedure
     Dosage: UNK UNK, ONCE
     Route: 042
     Dates: start: 20210812, end: 20210812

REACTIONS (2)
  - Respiratory distress [None]
  - Vomiting [None]

NARRATIVE: CASE EVENT DATE: 20210812
